FAERS Safety Report 9348265 (Version 2)
Quarter: 2013Q4

REPORT INFORMATION
  Report Type: Spontaneous
  Country: US (occurrence: US)
  Receive Date: 20130614
  Receipt Date: 20131030
  Transmission Date: 20140711
  Serious: Yes (Hospitalization, Other)
  Sender: FDA-Public Use
  Company Number: US-PFIZER INC-2013178621

PATIENT
  Age: 32 Year
  Sex: Male
  Weight: 74.83 kg

DRUGS (1)
  1. LYRICA [Suspect]
     Indication: EPILEPSY
     Dosage: 150 MG, 3X/DAY
     Route: 048

REACTIONS (4)
  - Head injury [Unknown]
  - Convulsion [Unknown]
  - Dysphonia [Unknown]
  - Nasopharyngitis [Unknown]
